FAERS Safety Report 17125898 (Version 2)
Quarter: 2020Q1

REPORT INFORMATION
  Report Type: Spontaneous
  Country: BR (occurrence: BR)
  Receive Date: 20191208
  Receipt Date: 20200217
  Transmission Date: 20200409
  Serious: Yes (Other)
  Sender: FDA-Public Use
  Company Number: BR-AMGEN-BRASP2019203426

PATIENT
  Age: 47 Year
  Sex: Male

DRUGS (1)
  1. ENBREL [Suspect]
     Active Substance: ETANERCEPT
     Indication: PRODUCT USED FOR UNKNOWN INDICATION
     Dosage: UNK
     Route: 065
     Dates: start: 20160714, end: 201908

REACTIONS (7)
  - Spondylitis [Unknown]
  - Clavicle fracture [Unknown]
  - Hand fracture [Unknown]
  - Spinal fracture [Unknown]
  - Rib fracture [Unknown]
  - Accident [Unknown]
  - Ankle fracture [Unknown]

NARRATIVE: CASE EVENT DATE: 201909
